FAERS Safety Report 23808863 (Version 1)
Quarter: 2024Q2

REPORT INFORMATION
  Report Type: Report from Study
  Country: DE (occurrence: DE)
  Receive Date: 20240502
  Receipt Date: 20240502
  Transmission Date: 20240716
  Serious: Yes (Hospitalization)
  Sender: FDA-Public Use
  Company Number: DE-002147023-NVSC2021DE034547

PATIENT
  Sex: Female

DRUGS (29)
  1. METHOTREXATE [Suspect]
     Active Substance: METHOTREXATE
     Indication: Product used for unknown indication
     Dosage: 15 UNK
     Route: 065
     Dates: start: 20190729, end: 201908
  2. METHOTREXATE [Suspect]
     Active Substance: METHOTREXATE
     Dosage: 15 UNK FROM 09.2019
     Route: 065
     Dates: start: 20191002, end: 202001
  3. METHOTREXATE [Suspect]
     Active Substance: METHOTREXATE
     Dosage: 15 UNK
     Route: 065
     Dates: start: 20200220, end: 202004
  4. METHOTREXATE [Suspect]
     Active Substance: METHOTREXATE
     Dosage: 15 UNK
     Route: 065
     Dates: start: 20200610
  5. METHOTREXATE [Suspect]
     Active Substance: METHOTREXATE
     Dosage: 15 UNK
     Route: 065
     Dates: start: 20210630
  6. METHOTREXATE [Suspect]
     Active Substance: METHOTREXATE
     Dosage: 10 UNK FROM 10.2020
     Route: 065
     Dates: start: 20210118
  7. METHOTREXATE [Suspect]
     Active Substance: METHOTREXATE
     Dosage: 10 UNK
     Route: 065
     Dates: start: 20220707
  8. METHOTREXATE [Suspect]
     Active Substance: METHOTREXATE
     Dosage: 12.5 UNK
     Route: 065
     Dates: start: 20211221
  9. METHOTREXATE [Suspect]
     Active Substance: METHOTREXATE
     Dosage: 10 UNK
     Route: 065
     Dates: start: 20221207
  10. METHOTREXATE [Suspect]
     Active Substance: METHOTREXATE
     Dosage: 7.5 UNK
     Route: 065
     Dates: start: 20230620
  11. IDACIO [Suspect]
     Active Substance: ADALIMUMAB-AACF
     Indication: Product used for unknown indication
     Dosage: 40 MILLIGRAM ( FROM 10.2020)
     Route: 065
     Dates: start: 20210118
  12. IDACIO [Suspect]
     Active Substance: ADALIMUMAB-AACF
     Dosage: 40 MILLIGRAM
     Route: 065
     Dates: start: 20210630
  13. IDACIO [Suspect]
     Active Substance: ADALIMUMAB-AACF
     Dosage: 40 MILLIGRAM
     Route: 065
     Dates: start: 20211221
  14. IDACIO [Suspect]
     Active Substance: ADALIMUMAB-AACF
     Dosage: 40 MILLIGRAM
     Route: 065
     Dates: start: 20220707
  15. IDACIO [Suspect]
     Active Substance: ADALIMUMAB-AACF
     Dosage: 40 MILLIGRAM
     Dates: start: 20221207
  16. IDACIO [Suspect]
     Active Substance: ADALIMUMAB-AACF
     Dosage: UNK
     Route: 065
  17. IDACIO [Suspect]
     Active Substance: ADALIMUMAB-AACF
     Dosage: 40 MILLIGRAM
     Route: 065
     Dates: start: 20230620
  18. ADALIMUMAB [Suspect]
     Active Substance: ADALIMUMAB\ISOPROPYL ALCOHOL
     Indication: Product used for unknown indication
     Dosage: 40 MILLIGRAM
     Route: 065
     Dates: start: 20191002, end: 202001
  19. ADALIMUMAB [Suspect]
     Active Substance: ADALIMUMAB\ISOPROPYL ALCOHOL
     Dosage: 40 MILLIGRAM FROM 09.2019 FROM 09.2019
     Route: 065
     Dates: start: 20190729, end: 201908
  20. ADALIMUMAB [Suspect]
     Active Substance: ADALIMUMAB\ISOPROPYL ALCOHOL
     Dosage: UNK
     Route: 065
  21. HYRIMOZ [Suspect]
     Active Substance: ADALIMUMAB-ADAZ
     Indication: Rheumatoid arthritis
     Dosage: 40 MILLIGRAM
     Route: 065
     Dates: start: 20200220, end: 202004
  22. HYRIMOZ [Suspect]
     Active Substance: ADALIMUMAB-ADAZ
     Dosage: 40 MILLIGRAM
     Route: 065
     Dates: start: 20210114
  23. HYRIMOZ [Suspect]
     Active Substance: ADALIMUMAB-ADAZ
     Dosage: 40 MILLIGRAM
     Route: 065
     Dates: start: 20210415
  24. HYRIMOZ [Suspect]
     Active Substance: ADALIMUMAB-ADAZ
     Dosage: 40 MILLIGRAM
     Route: 065
     Dates: start: 20220601
  25. HYRIMOZ [Suspect]
     Active Substance: ADALIMUMAB-ADAZ
     Dosage: UNK
     Route: 065
  26. HYRIMOZ [Suspect]
     Active Substance: ADALIMUMAB-ADAZ
     Dosage: 40 MILLIGRAM
     Route: 065
     Dates: start: 20221109
  27. HYRIMOZ [Suspect]
     Active Substance: ADALIMUMAB-ADAZ
     Dosage: 40 MILLIGRAM
     Route: 065
     Dates: start: 20211004
  28. HYRIMOZ [Suspect]
     Active Substance: ADALIMUMAB-ADAZ
     Dosage: 40 MILLIGRAM
     Route: 065
     Dates: start: 20230516
  29. HYRIMOZ [Suspect]
     Active Substance: ADALIMUMAB-ADAZ
     Dosage: 40 MILLIGRAM
     Route: 065
     Dates: start: 20231016

REACTIONS (5)
  - Uterine polyp [Unknown]
  - Uterine leiomyoma [Unknown]
  - Gastrointestinal infection [Recovered/Resolved]
  - Influenza like illness [Recovered/Resolved]
  - Arthropod bite [Recovered/Resolved]

NARRATIVE: CASE EVENT DATE: 20200315
